FAERS Safety Report 13006657 (Version 1)
Quarter: 2016Q4

REPORT INFORMATION
  Report Type: Spontaneous
  Country: US (occurrence: US)
  Receive Date: 20161207
  Receipt Date: 20161207
  Transmission Date: 20170207
  Serious: Yes (Hospitalization, Other)
  Sender: FDA-Public Use
  Company Number: US-CELGENEUS-USA-2016118062

PATIENT

DRUGS (4)
  1. ROMIDEPSIN [Concomitant]
     Active Substance: ROMIDEPSIN
     Indication: T-CELL LYMPHOMA REFRACTORY
     Dosage: 8 MG/M2
     Route: 041
  2. CARFILZOMIB [Concomitant]
     Active Substance: CARFILZOMIB
     Indication: T-CELL LYMPHOMA REFRACTORY
     Dosage: 36 MG/M2
     Route: 041
  3. REVLIMID [Suspect]
     Active Substance: LENALIDOMIDE
     Indication: T-CELL LYMPHOMA REFRACTORY
     Dosage: 15 MG
     Route: 048
  4. CARFILZOMIB [Concomitant]
     Active Substance: CARFILZOMIB
     Dosage: 45 MG/M2
     Route: 041

REACTIONS (7)
  - Atrial flutter [Unknown]
  - Febrile neutropenia [Unknown]
  - Infection [Unknown]
  - Thrombocytopenia [Unknown]
  - Oedema [Unknown]
  - Neutropenia [Unknown]
  - Lymphoma [Unknown]
